FAERS Safety Report 9120907 (Version 1)
Quarter: 2013Q1

REPORT INFORMATION
  Report Type: Spontaneous
  Country: TW (occurrence: TW)
  Receive Date: 20130226
  Receipt Date: 20130226
  Transmission Date: 20140127
  Serious: Yes (Hospitalization)
  Sender: FDA-Public Use
  Company Number: TW-TEVA-387598ISR

PATIENT
  Age: 64 Year
  Sex: Male

DRUGS (6)
  1. OXALIPLATIN [Suspect]
     Indication: COLON CANCER
     Dosage: 85 MG/M2; OXALIPLATIN INFUSION
     Route: 050
  2. OXALIPLATIN [Suspect]
     Indication: METASTASES TO LIVER
     Dosage: 85 MG/M2; OXALIPLATIN INFUSION
     Route: 050
  3. FLUOROURACIL [Concomitant]
     Indication: COLON CANCER
     Dosage: 1.5 G/M2
     Route: 065
  4. FLUOROURACIL [Concomitant]
     Indication: METASTASES TO LIVER
     Dosage: 1.5 G/M2
     Route: 065
  5. FOLINIC ACID [Concomitant]
     Indication: COLON CANCER
     Dosage: 75 MG /M2
     Route: 065
  6. FOLINIC ACID [Concomitant]
     Indication: METASTASES TO LIVER
     Dosage: 75 MG/M2
     Route: 065

REACTIONS (1)
  - Hyperammonaemic encephalopathy [Not Recovered/Not Resolved]
